FAERS Safety Report 16423915 (Version 1)
Quarter: 2019Q2

REPORT INFORMATION
  Report Type: Spontaneous
  Country: JP (occurrence: JP)
  Receive Date: 20190613
  Receipt Date: 20190613
  Transmission Date: 20190711
  Serious: Yes (Other)
  Sender: FDA-Public Use
  Company Number: JP-SA-2019SA158409

PATIENT
  Sex: Male

DRUGS (2)
  1. JEVTANA [Suspect]
     Active Substance: CABAZITAXEL
     Indication: PROSTATE CANCER
     Dosage: UNK
     Route: 041
     Dates: start: 201904, end: 2019
  2. JEVTANA [Suspect]
     Active Substance: CABAZITAXEL
     Dosage: 20 MG/M2
     Route: 041

REACTIONS (4)
  - Cough [Unknown]
  - Cell marker increased [Unknown]
  - Interstitial lung disease [Unknown]
  - Productive cough [Unknown]

NARRATIVE: CASE EVENT DATE: 201904
